FAERS Safety Report 20063283 (Version 1)
Quarter: 2021Q4

REPORT INFORMATION
  Report Type: Spontaneous
  Country: US (occurrence: None)
  Receive Date: 20211111
  Receipt Date: 20211111
  Transmission Date: 20220303
  Serious: Yes (Disabling)
  Sender: FDA-Public Use
  Company Number: None

PATIENT
  Age: 52 Year
  Sex: Female

DRUGS (1)
  1. DYSPORT [Suspect]
     Active Substance: ABOBOTULINUMTOXINA
     Indication: Skin cosmetic procedure
     Dates: start: 20200701, end: 20200720

REACTIONS (22)
  - Dysphagia [None]
  - Dry throat [None]
  - Fatigue [None]
  - Arthralgia [None]
  - Product intolerance [None]
  - Dermatitis contact [None]
  - Gastrointestinal bacterial overgrowth [None]
  - Gastrointestinal disorder [None]
  - Adrenal insufficiency [None]
  - Antinuclear antibody positive [None]
  - Alopecia [None]
  - Alopecia [None]
  - Dysmorphism [None]
  - Eye pain [None]
  - Feeling abnormal [None]
  - Influenza like illness [None]
  - Headache [None]
  - Dyspepsia [None]
  - Musculoskeletal stiffness [None]
  - Temporomandibular joint syndrome [None]
  - Pruritus [None]
  - Urinary incontinence [None]

NARRATIVE: CASE EVENT DATE: 20200706
